FAERS Safety Report 23054788 (Version 1)
Quarter: 2023Q4

REPORT INFORMATION
  Report Type: Spontaneous
  Country: US (occurrence: US)
  Receive Date: 20231011
  Receipt Date: 20231011
  Transmission Date: 20240110
  Serious: Yes (Hospitalization, Other)
  Sender: FDA-Public Use
  Company Number: US-BAYER-2023A139746

PATIENT
  Age: 26 Year
  Sex: Male

DRUGS (12)
  1. KOVALTRY [Suspect]
     Active Substance: ANTIHEMOPHILIC FACTOR, HUMAN RECOMBINANT
     Indication: Factor VIII deficiency
     Dosage: 2500 UNITS (2250-2750) SLOW IV PUSH DAILY AS NEEDED
     Route: 042
     Dates: start: 202308
  2. KOVALTRY [Suspect]
     Active Substance: ANTIHEMOPHILIC FACTOR, HUMAN RECOMBINANT
     Indication: Factor VIII deficiency
     Dosage: 5000 UNITS
  3. KOVALTRY [Suspect]
     Active Substance: ANTIHEMOPHILIC FACTOR, HUMAN RECOMBINANT
     Indication: Factor VIII deficiency
     Dosage: 5000 UNITS FOR ELBOW BLEED
     Dates: start: 20230902, end: 20230902
  4. KOVALTRY [Suspect]
     Active Substance: ANTIHEMOPHILIC FACTOR, HUMAN RECOMBINANT
     Indication: Factor VIII deficiency
     Dosage: 5000 UNITS FOR ELBOW BLEED
     Dates: start: 20230903, end: 20230903
  5. KOVALTRY [Suspect]
     Active Substance: ANTIHEMOPHILIC FACTOR, HUMAN RECOMBINANT
     Indication: Factor VIII deficiency
     Dosage: 5000 UNITS FOR ELBOW BLEED
     Dates: start: 20230904, end: 20230904
  6. KOVALTRY [Suspect]
     Active Substance: ANTIHEMOPHILIC FACTOR, HUMAN RECOMBINANT
     Indication: Factor VIII deficiency
     Dosage: 5000 UNITS FOR SHIN BLEED
     Dates: start: 20230911, end: 20230911
  7. KOVALTRY [Suspect]
     Active Substance: ANTIHEMOPHILIC FACTOR, HUMAN RECOMBINANT
     Indication: Factor VIII deficiency
     Dosage: 5000 UNITS FOR SHIN BLEED
     Dates: start: 20230912, end: 20230912
  8. KOVALTRY [Suspect]
     Active Substance: ANTIHEMOPHILIC FACTOR, HUMAN RECOMBINANT
     Indication: Factor VIII deficiency
     Dosage: 5000 UNITS FOR SHIN BLEED
     Dates: start: 20230913, end: 20230913
  9. KOVALTRY [Suspect]
     Active Substance: ANTIHEMOPHILIC FACTOR, HUMAN RECOMBINANT
     Indication: Factor VIII deficiency
     Dosage: FOR BLOOD IN STOOL
     Dates: start: 20230929, end: 20230929
  10. KOVALTRY [Suspect]
     Active Substance: ANTIHEMOPHILIC FACTOR, HUMAN RECOMBINANT
     Indication: Factor VIII deficiency
     Dosage: FOR BLOOD IN STOOLS
     Dates: start: 20231001, end: 20231001
  11. KOVALTRY [Suspect]
     Active Substance: ANTIHEMOPHILIC FACTOR, HUMAN RECOMBINANT
     Indication: Factor VIII deficiency
     Dosage: FOR BLOOD IN STOOLS
     Dates: start: 20231002, end: 20231002
  12. HEMLIBRA [Concomitant]
     Active Substance: EMICIZUMAB-KXWH

REACTIONS (3)
  - Haemarthrosis [None]
  - Haemorrhage [None]
  - Haematochezia [None]

NARRATIVE: CASE EVENT DATE: 20230902
